FAERS Safety Report 5967969-5 (Version None)
Quarter: 2008Q4

REPORT INFORMATION
  Report Type: 
  Country: None (occurrence: None)
  Receive Date: 20081121
  Receipt Date: 20081121
  Transmission Date: 20090506
  Serious: Yes (Life-Threatening)
  Sender: FDA-Public Use
  Company Number: None

PATIENT
  Age: 46 Year
  Sex: Male

DRUGS (1)
  1. TASIGNA [Suspect]
     Indication: MALIGNANT MAST CELL NEOPLASM
     Dosage: 400MG TWICE A DAY BY MOUTH
     Route: 048
     Dates: start: 20081029

REACTIONS (6)
  - DYSARTHRIA [None]
  - LOCAL SWELLING [None]
  - PRURITUS GENITAL [None]
  - RASH [None]
  - SWELLING FACE [None]
  - VISION BLURRED [None]
